FAERS Safety Report 5217970-4 (Version None)
Quarter: 2007Q1

REPORT INFORMATION
  Report Type: 
  Country: None (occurrence: None)
  Receive Date: 20070124
  Receipt Date: 20070115
  Transmission Date: 20070707
  Serious: Yes (Other)
  Sender: FDA-Public Use
  Company Number: PHBS2007NL00950

PATIENT
  Age: 74 Year
  Sex: Male
  Weight: 75 kg

DRUGS (3)
  1. EXELON [Suspect]
     Indication: MEMORY IMPAIRMENT
     Dosage: 3 MG/D
     Route: 048
     Dates: start: 20061015
  2. SYMMETREL [Concomitant]
     Dosage: 100 MG/D
     Route: 065
     Dates: start: 20000101
  3. HYZAAR [Concomitant]
     Dosage: 1 DF/DAY (50/12.5 MG)
     Route: 065

REACTIONS (2)
  - LEUKOCYTOCLASTIC VASCULITIS [None]
  - RASH [None]
